FAERS Safety Report 9311969 (Version 1)
Quarter: 2013Q2

REPORT INFORMATION
  Report Type: Spontaneous
  Country: AT (occurrence: AT)
  Receive Date: 20130528
  Receipt Date: 20130528
  Transmission Date: 20140414
  Serious: Yes (Other)
  Sender: FDA-Public Use
  Company Number: AT-AMGEN-AUTSP2013037451

PATIENT
  Age: 82 Year
  Sex: Female

DRUGS (3)
  1. DENOSUMAB [Suspect]
     Indication: PRODUCT USED FOR UNKNOWN INDICATION
     Dosage: 60 MG, Q6MO
  2. VITAMIN D                          /00107901/ [Concomitant]
  3. CALCIUM [Concomitant]

REACTIONS (1)
  - Osteonecrosis of jaw [Recovered/Resolved]
